FAERS Safety Report 6132396-7 (Version None)
Quarter: 2009Q1

REPORT INFORMATION
  Report Type: 
  Country: None (occurrence: None)
  Receive Date: 20090325
  Receipt Date: 20090317
  Transmission Date: 20090719
  Serious: Yes (Other)
  Sender: FDA-Public Use
  Company Number: PHEH2008US10252

PATIENT
  Sex: Female
  Weight: 54.422 kg

DRUGS (17)
  1. TASIGNA [Suspect]
     Indication: CHRONIC MYELOID LEUKAEMIA
     Dosage: 200 MG, BID
     Route: 048
     Dates: start: 20081112, end: 20081112
  2. MIRTAZAPINE [Concomitant]
     Indication: MAJOR DEPRESSION
     Dosage: 45 MG, QHS
     Route: 048
     Dates: start: 20080930, end: 20090112
  3. CALCIUM [Concomitant]
  4. DIAZEPAM [Concomitant]
  5. DOCUSATE [Concomitant]
  6. VITAMINS [Concomitant]
  7. LEXAPRO [Concomitant]
  8. LASIX [Concomitant]
  9. HYDROCODONE BITARTRATE [Concomitant]
  10. THYROID HORMONES [Concomitant]
  11. IMODIUM A-D [Concomitant]
  12. ZOFRAN [Concomitant]
  13. ROXICODONE [Concomitant]
  14. PROTONIX [Concomitant]
  15. PHENERGAN ^AVENTIS PHARMA^ [Concomitant]
  16. RESTORIL [Concomitant]
  17. AMBIEN [Concomitant]

REACTIONS (6)
  - DRUG HYPERSENSITIVITY [None]
  - DYSTONIA [None]
  - MUSCLE SPASMS [None]
  - PRURITUS [None]
  - THROAT TIGHTNESS [None]
  - TORTICOLLIS [None]
